FAERS Safety Report 17091194 (Version 1)
Quarter: 2019Q4

REPORT INFORMATION
  Report Type: Report from Study
  Country: TW (occurrence: TW)
  Receive Date: 20191129
  Receipt Date: 20191129
  Transmission Date: 20200122
  Serious: Yes (Other)
  Sender: FDA-Public Use
  Company Number: TW-ASTRAZENECA-2019SF67487

PATIENT
  Age: 60 Year
  Sex: Female

DRUGS (2)
  1. LYNPARZA [Suspect]
     Active Substance: OLAPARIB
     Indication: OVARIAN CANCER
     Route: 048
     Dates: start: 20190601, end: 20190625
  2. LYNPARZA [Suspect]
     Active Substance: OLAPARIB
     Indication: OVARIAN CANCER
     Dosage: 1 TABLET IN THE MORNING AND 2 TABLETS AT NIGHT150.0MG UNKNOWN
     Route: 048
     Dates: start: 20190626

REACTIONS (17)
  - Fatigue [Unknown]
  - Hypotension [Unknown]
  - Nausea [Unknown]
  - Upper respiratory tract infection [Unknown]
  - Thrombocytopenia [Unknown]
  - Gait disturbance [Unknown]
  - Oedema peripheral [Unknown]
  - Abdominal pain upper [Unknown]
  - Vomiting [Unknown]
  - Dermatitis [Unknown]
  - Urinary tract infection [Unknown]
  - Agranulocytosis [Unknown]
  - Dyspnoea [Unknown]
  - Rhinorrhoea [Unknown]
  - Anaemia [Unknown]
  - Productive cough [Unknown]
  - Dyspepsia [Unknown]

NARRATIVE: CASE EVENT DATE: 20190625
